FAERS Safety Report 5919927-4 (Version None)
Quarter: 2008Q3

REPORT INFORMATION
  Report Type: 
  Country: None (occurrence: None)
  Receive Date: 20080909
  Receipt Date: 20070816
  Transmission Date: 20090109
  Serious: Yes (Hospitalization)
  Sender: FDA-Public Use
  Company Number: 163-20785-07070850

PATIENT
  Age: 46 Year
  Sex: Male

DRUGS (3)
  1. THALOMID [Suspect]
     Indication: PYODERMA
     Dosage: DAILY, ORAL,  ORAL
     Route: 048
     Dates: start: 20070709, end: 20070101
  2. THALOMID [Suspect]
     Indication: PYODERMA
     Dosage: DAILY, ORAL,  ORAL
     Route: 048
     Dates: start: 20070101
  3. CIDOFOVIR (CIDOFOVIR) [Suspect]
     Indication: PYODERMA

REACTIONS (2)
  - BLOOD CREATININE INCREASED [None]
  - RENAL IMPAIRMENT [None]
